FAERS Safety Report 5154189-X (Version None)
Quarter: 2006Q4

REPORT INFORMATION
  Report Type: 
  Country: None (occurrence: None)
  Receive Date: 20061120
  Receipt Date: 20061113
  Transmission Date: 20070319
  Serious: Yes (Hospitalization)
  Sender: FDA-Public Use
  Company Number: CA-BRISTOL-MYERS SQUIBB COMPANY-13577259

PATIENT
  Age: 65 Year
  Sex: Male

DRUGS (2)
  1. ORENCIA [Suspect]
     Indication: RHEUMATOID ARTHRITIS
     Route: 042
     Dates: start: 20061102
  2. PREDNISONE TAB [Concomitant]

REACTIONS (4)
  - BLOOD PRESSURE DECREASED [None]
  - PNEUMONIA [None]
  - RENAL FAILURE [None]
  - SEPTIC SHOCK [None]
